FAERS Safety Report 6700966-0 (Version None)
Quarter: 2010Q2

REPORT INFORMATION
  Report Type: 
  Country: None (occurrence: None)
  Receive Date: 20100428
  Receipt Date: 20100427
  Transmission Date: 20101027
  Serious: Yes (Other)
  Sender: FDA-Public Use
  Company Number: US-B.I. PHARMACEUTICALS,INC./RIDGEFIELD-2010-BP-04797BP

PATIENT
  Age: 93 Year
  Sex: Female

DRUGS (3)
  1. AGGRENOX [Suspect]
     Indication: TRANSIENT ISCHAEMIC ATTACK
     Dosage: 25/200MG
     Route: 048
     Dates: start: 20100423
  2. CARDIZEM [Concomitant]
     Indication: HYPERTENSION
  3. TOPROL-XL [Concomitant]
     Indication: HYPERTENSION

REACTIONS (4)
  - HEADACHE [None]
  - HYPERTENSION [None]
  - MYALGIA [None]
  - TREMOR [None]
